FAERS Safety Report 9799815 (Version 3)
Quarter: 2015Q3

REPORT INFORMATION
  Report Type: Spontaneous
  Country: US (occurrence: US)
  Receive Date: 20140106
  Receipt Date: 20150806
  Transmission Date: 20151125
  Serious: No
  Sender: FDA-Public Use
  Company Number: US-GILEAD-2010-0031584

PATIENT
  Age: 33 Year
  Sex: Female
  Weight: 70.31 kg

DRUGS (6)
  1. LETAIRIS [Suspect]
     Active Substance: AMBRISENTAN
     Indication: PULMONARY ARTERIAL HYPERTENSION
     Route: 048
     Dates: start: 20100405
  2. OXYCODONE [Concomitant]
     Active Substance: OXYCODONE
  3. SIMVASTATIN. [Concomitant]
     Active Substance: SIMVASTATIN
  4. AMINO ACIDS [Concomitant]
     Active Substance: AMINO ACIDS
  5. FOLIC ACID. [Concomitant]
     Active Substance: FOLIC ACID
  6. HYDROXYUREA. [Concomitant]
     Active Substance: HYDROXYUREA

REACTIONS (1)
  - Liver function test abnormal [Unknown]
